FAERS Safety Report 24456870 (Version 1)
Quarter: 2024Q4

REPORT INFORMATION
  Report Type: Report from Study
  Country: US (occurrence: US)
  Receive Date: 20241018
  Receipt Date: 20241018
  Transmission Date: 20250114
  Serious: Yes (Hospitalization)
  Sender: ABBVIE
  Company Number: US-ABBVIE-5957924

PATIENT
  Sex: Female
  Weight: 55.791 kg

DRUGS (2)
  1. SKYRIZI [Suspect]
     Active Substance: RISANKIZUMAB-RZAA
     Indication: Psoriasis
     Dosage: STRENGTH 150 MG
     Route: 058
     Dates: start: 20240716
  2. FLUOXETINE [Concomitant]
     Active Substance: FLUOXETINE HYDROCHLORIDE
     Indication: Anxiety

REACTIONS (6)
  - Psoriasis [Recovering/Resolving]
  - Chills [Recovered/Resolved]
  - Infection [Unknown]
  - Pain [Recovered/Resolved]
  - Rash [Recovering/Resolving]
  - Purulence [Recovered/Resolved]

NARRATIVE: CASE EVENT DATE: 20240101
